FAERS Safety Report 8351170-4 (Version None)
Quarter: 2012Q2

REPORT INFORMATION
  Report Type: 
  Country: None (occurrence: None)
  Receive Date: 20120510
  Receipt Date: 20120508
  Transmission Date: 20120825
  Serious: No
  Sender: FDA-Public Use
  Company Number: US-PFIZER INC-2012113088

PATIENT
  Sex: Female
  Weight: 45.351 kg

DRUGS (3)
  1. PROTONIX [Suspect]
     Indication: DYSPEPSIA
     Dosage: UNK
     Dates: end: 20120501
  2. EFFEXOR [Suspect]
     Indication: DEPRESSION
     Dosage: 75 MG, DAILY
  3. PROPRANOLOL [Concomitant]
     Indication: HYPERTENSION
     Dosage: 40 MG, DAILY

REACTIONS (1)
  - DYSPEPSIA [None]
